FAERS Safety Report 4331191-9 (Version None)
Quarter: 2004Q2

REPORT INFORMATION
  Report Type: 
  Country: None (occurrence: None)
  Receive Date: 20040402
  Receipt Date: 20040322
  Transmission Date: 20050107
  Serious: Yes (Hospitalization)
  Sender: FDA-Public Use
  Company Number: 7703

PATIENT
  Age: 70 Year
  Sex: Male

DRUGS (2)
  1. MORPHINE SULFATE [Suspect]
     Indication: PAIN
     Dosage: 50 MG BID
  2. FENTANYL [Suspect]
     Indication: PAIN
     Dosage: 25 MICROGRAM Q1 HR
     Route: 062

REACTIONS (5)
  - CONFUSIONAL STATE [None]
  - CYANOSIS CENTRAL [None]
  - MIOSIS [None]
  - RESPIRATORY RATE DECREASED [None]
  - SEDATION [None]
